FAERS Safety Report 4349020-6 (Version None)
Quarter: 2004Q2

REPORT INFORMATION
  Report Type: 
  Country: None (occurrence: None)
  Receive Date: 20040423
  Receipt Date: 20040414
  Transmission Date: 20050107
  Serious: Yes (Hospitalization)
  Sender: FDA-Public Use
  Company Number: US-JNJFOC-20040403444

PATIENT
  Age: 44 Year
  Sex: Female

DRUGS (6)
  1. DURAGESIC [Suspect]
     Indication: PAIN
     Dosage: 75 UG/HR, 1 IN 72 HOUR, TRANSDERMAL
     Route: 062
     Dates: start: 20021201
  2. MORPHINE SULFATE [Suspect]
     Indication: PAIN
     Dosage: ORAL
     Route: 048
  3. NEURONTIN [Concomitant]
  4. LABETOLOL (LABETALOL) [Concomitant]
  5. METHOTREXATE [Concomitant]
  6. METHOCARBAMOL [Concomitant]

REACTIONS (4)
  - DYSARTHRIA [None]
  - INCOHERENT [None]
  - LOSS OF CONSCIOUSNESS [None]
  - SOMNOLENCE [None]
